FAERS Safety Report 10786300 (Version 1)
Quarter: 2015Q1

REPORT INFORMATION
  Report Type: Spontaneous
  Country: JP (occurrence: JP)
  Receive Date: 20150211
  Receipt Date: 20150211
  Transmission Date: 20150721
  Serious: Yes (Other)
  Sender: FDA-Public Use
  Company Number: JP-ACTAVIS-2015-01605

PATIENT
  Age: 46 Year
  Sex: Male

DRUGS (2)
  1. CISPLATIN. [Concomitant]
     Active Substance: CISPLATIN
     Indication: NON-SMALL CELL LUNG CANCER
     Dosage: UNK
     Route: 065
  2. DOCETAXEL (UNKNOWN) [Suspect]
     Active Substance: DOCETAXEL
     Indication: NON-SMALL CELL LUNG CANCER
     Dosage: 60 MG/M2, CYCLICAL DAY 1 OF EVERY 21 DAY
     Route: 065

REACTIONS (4)
  - Dacryostenosis acquired [Recovering/Resolving]
  - Nail disorder [Unknown]
  - Lacrimation increased [Recovering/Resolving]
  - Fluid retention [Unknown]
